FAERS Safety Report 11246493 (Version 1)
Quarter: 2015Q3

REPORT INFORMATION
  Report Type: Spontaneous
  Country: US (occurrence: US)
  Receive Date: 20150708
  Receipt Date: 20150708
  Transmission Date: 20151125
  Serious: Yes (Other)
  Sender: FDA-Public Use
  Company Number: US-CIPLA LTD.-2015US05373

PATIENT

DRUGS (1)
  1. GEMCITABINE [Suspect]
     Active Substance: GEMCITABINE\GEMCITABINE HYDROCHLORIDE
     Indication: PANCREATIC CARCINOMA
     Dosage: 1000 MG/M2 DAYS 1, 8, 15, AND 22 OF CYCLE 1 AND ON DAYS 1, 8, AND 15 OF SUBSEQUENT CYCLES
     Route: 042

REACTIONS (1)
  - Abdominal pain [Unknown]
